FAERS Safety Report 5371604-7 (Version None)
Quarter: 2007Q2

REPORT INFORMATION
  Report Type: 
  Country: None (occurrence: None)
  Receive Date: 20070615
  Receipt Date: 20061211
  Transmission Date: 20071010
  Serious: Yes (Other)
  Sender: FDA-Public Use
  Company Number: 200612683US

PATIENT
  Age: 62 Year
  Sex: Male

DRUGS (12)
  1. LANTUS [Suspect]
     Indication: DIABETES MELLITUS NON-INSULIN-DEPENDENT
     Dosage: 5 IU BID
     Dates: start: 20060315, end: 20060315
  2. LANTUS [Suspect]
     Indication: DIABETES MELLITUS NON-INSULIN-DEPENDENT
     Dosage: 40 IU BID
     Dates: start: 20060301
  3. LANTUS [Suspect]
     Indication: DIABETES MELLITUS NON-INSULIN-DEPENDENT
     Dosage: 20 IU QD
     Dates: start: 20060301
  4. OPTICLIK [Suspect]
     Indication: DIABETES MELLITUS NON-INSULIN-DEPENDENT
  5. OPTICLIK [Suspect]
     Indication: DIABETES MELLITUS NON-INSULIN-DEPENDENT
  6. TOPROL-XL [Concomitant]
  7. NORVASC [Concomitant]
  8. BENAZEPRIL HYDROCHLORIDE (LOTENSIN) [Concomitant]
  9. PLAVIX [Concomitant]
  10. SIMVASTATIN, EZETIMIBE (VYTORIN) [Concomitant]
  11. SYNTHROID [Concomitant]
  12. INSULIN HUMAN INJECTION, ISOPHANE, INSULIN HUMAN ZINC SUSPENSION (HUMU [Concomitant]

REACTIONS (2)
  - BLOOD GLUCOSE DECREASED [None]
  - HYPERGLYCAEMIA [None]
